FAERS Safety Report 10215435 (Version 2)
Quarter: 2014Q2

REPORT INFORMATION
  Report Type: Spontaneous
  Country: US (occurrence: US)
  Receive Date: 20140604
  Receipt Date: 20140604
  Transmission Date: 20141212
  Serious: Yes (Other)
  Sender: FDA-Public Use
  Company Number: US-JNJFOC-20140417798

PATIENT
  Age: 51 Year
  Sex: Female

DRUGS (6)
  1. NEURONTIN [Concomitant]
     Indication: PAIN
     Route: 048
     Dates: start: 201311
  2. SANDOZ FENTANYL TRANSDERMAL SYSTEM [Suspect]
     Indication: CANCER PAIN
     Route: 062
  3. SANDOZ FENTANYL TRANSDERMAL SYSTEM [Suspect]
     Indication: CANCER PAIN
     Route: 062
     Dates: start: 201210, end: 201303
  4. SANDOZ FENTANYL TRANSDERMAL SYSTEM [Suspect]
     Indication: CANCER PAIN
     Route: 062
     Dates: start: 201208, end: 201210
  5. SANDOZ FENTANYL TRANSDERMAL SYSTEM [Suspect]
     Indication: CANCER PAIN
     Route: 062
     Dates: start: 201303
  6. PERCOCET [Concomitant]
     Indication: PAIN
     Dosage: 10/325 MG
     Route: 048
     Dates: start: 201207

REACTIONS (4)
  - Poor quality drug administered [Unknown]
  - Product quality issue [Unknown]
  - Adverse event [Recovered/Resolved]
  - Drug ineffective [Not Recovered/Not Resolved]
